FAERS Safety Report 6163550-6 (Version None)
Quarter: 2009Q2

REPORT INFORMATION
  Report Type: 
  Country: None (occurrence: None)
  Receive Date: 20090422
  Receipt Date: 20020826
  Transmission Date: 20091009
  Serious: No
  Sender: FDA-Public Use
  Company Number: US-SOLVAY-00202002157

PATIENT
  Age: 58 Year
  Sex: Female

DRUGS (5)
  1. HORMONE REPLACEMENT [Concomitant]
     Indication: HORMONE REPLACEMENT THERAPY
     Dosage: DAILY DOSE: UNK.
     Route: 048
     Dates: start: 19970101
  2. ANDROGEL [Suspect]
     Indication: ACCIDENTAL EXPOSURE
     Dosage: DAILY DOSE: 5 G.
     Route: 062
     Dates: start: 20020101
  3. FOSAMAX [Concomitant]
     Indication: BONE DENSITY DECREASED
     Dosage: DAILY DOSE: UNK.
     Route: 048
  4. PROZAC [Concomitant]
     Indication: ANXIETY
     Dosage: DAILY DOSE: UNK.
     Route: 048
  5. VITAMINS [Concomitant]
     Indication: HYPOVITAMINOSIS
     Dosage: DAILY DOSE: UNK.
     Route: 048

REACTIONS (2)
  - ACNE [None]
  - HAIR GROWTH ABNORMAL [None]
